FAERS Safety Report 4294054-3 (Version None)
Quarter: 2004Q1

REPORT INFORMATION
  Report Type: 
  Country: None (occurrence: None)
  Receive Date: 20040211
  Receipt Date: 20040126
  Transmission Date: 20041129
  Serious: Yes (Hospitalization)
  Sender: FDA-Public Use
  Company Number: DSA_23934_2004

PATIENT
  Age: 89 Year
  Sex: Female

DRUGS (5)
  1. LORAZEPAM [Suspect]
     Dosage: 4 MG Q DAY PO
     Route: 048
     Dates: start: 20031017
  2. AMBROXOL [Suspect]
     Dosage: 60 MG BID PO
     Route: 048
     Dates: start: 20031017, end: 20031024
  3. ATARAX [Suspect]
     Dosage: 25 MG Q DAY PO
     Route: 048
     Dates: start: 20031017
  4. SINGULAIR [Suspect]
     Dosage: 1 UNK Q DAY PO
     Route: 048
     Dates: start: 20031017, end: 20031031
  5. TRANSIPEG [Suspect]
     Dosage: 1 UNK Q DAY PO
     Route: 048
     Dates: start: 20031017

REACTIONS (2)
  - AGGRESSION [None]
  - CHOREA [None]
